FAERS Safety Report 4967872-3 (Version None)
Quarter: 2006Q2

REPORT INFORMATION
  Report Type: 
  Country: None (occurrence: None)
  Receive Date: 20060410
  Receipt Date: 20050928
  Transmission Date: 20061013
  Serious: Yes (Death, Hospitalization)
  Sender: FDA-Public Use
  Company Number: US-MERCK-0509USA04853

PATIENT
  Age: 62 Year
  Sex: Male

DRUGS (3)
  1. VIOXX [Suspect]
     Route: 048
  2. COZAAR [Concomitant]
     Route: 048
  3. ALLOPURINOL [Concomitant]
     Route: 065

REACTIONS (4)
  - BLOOD PRESSURE INCREASED [None]
  - BRAIN STEM HAEMORRHAGE [None]
  - DEATH [None]
  - HYPOTONIA [None]
